FAERS Safety Report 5674162-2 (Version None)
Quarter: 2008Q1

REPORT INFORMATION
  Report Type: 
  Country: None (occurrence: None)
  Receive Date: 20080320
  Receipt Date: 20080314
  Transmission Date: 20080703
  Serious: Yes (Life-Threatening, Hospitalization)
  Sender: FDA-Public Use
  Company Number: PHBS2008BE03305

PATIENT
  Age: 58 Year
  Sex: Male

DRUGS (3)
  1. ARTEOPTIC 2% (NVO) [Suspect]
     Indication: GLAUCOMA
     Dosage: 1 DF, QD
     Dates: start: 20080206, end: 20080209
  2. EMCORETIC [Suspect]
     Indication: HYPERTENSION
     Route: 048
     Dates: start: 20050101, end: 20080209
  3. TEGRETOL [Concomitant]

REACTIONS (4)
  - CHEST PAIN [None]
  - DRUG INTERACTION [None]
  - LOSS OF CONSCIOUSNESS [None]
  - RESUSCITATION [None]
